FAERS Safety Report 6264346-7 (Version None)
Quarter: 2009Q3

REPORT INFORMATION
  Report Type: 
  Country: None (occurrence: None)
  Receive Date: 20090710
  Receipt Date: 20090701
  Transmission Date: 20100115
  Serious: Yes (Hospitalization)
  Sender: FDA-Public Use
  Company Number: A0795841A

PATIENT
  Age: 65 Year
  Sex: Female

DRUGS (2)
  1. LAPATINIB [Suspect]
     Dosage: 1000MG PER DAY
     Route: 048
     Dates: start: 20090225
  2. CAPECITABINE [Suspect]
     Dosage: 1500MG TWICE PER DAY
     Route: 048
     Dates: start: 20090318

REACTIONS (10)
  - ABDOMINAL PAIN UPPER [None]
  - CELLULITIS [None]
  - DEHYDRATION [None]
  - ERYTHEMA [None]
  - HYPOTENSION [None]
  - MALAISE [None]
  - OEDEMA [None]
  - OEDEMA PERIPHERAL [None]
  - PAIN IN EXTREMITY [None]
  - PYREXIA [None]
